FAERS Safety Report 20086550 (Version 1)
Quarter: 2021Q4

REPORT INFORMATION
  Report Type: Spontaneous
  Country: US (occurrence: None)
  Receive Date: 20211118
  Receipt Date: 20211118
  Transmission Date: 20220303
  Serious: Yes (Other)
  Sender: FDA-Public Use
  Company Number: None

PATIENT
  Age: 4 Year
  Weight: 15.75 kg

DRUGS (1)
  1. MONTELUKAST [Suspect]
     Active Substance: MONTELUKAST SODIUM
     Indication: Asthma
     Dates: start: 20181015, end: 20200302

REACTIONS (5)
  - Hallucination [None]
  - Nightmare [None]
  - Emotional disorder [None]
  - Tic [None]
  - Behaviour disorder [None]

NARRATIVE: CASE EVENT DATE: 20200302
